FAERS Safety Report 5130720-5 (Version None)
Quarter: 2006Q4

REPORT INFORMATION
  Report Type: 
  Country: None (occurrence: None)
  Receive Date: 20061018
  Receipt Date: 20061018
  Transmission Date: 20070319
  Serious: Yes (Death)
  Sender: FDA-Public Use
  Company Number: None

PATIENT
  Age: 77 Year
  Sex: Male
  Weight: 77.1115 kg

DRUGS (10)
  1. WARFARIN SODIUM [Suspect]
     Indication: PERIPHERAL VASCULAR DISORDER
     Dosage: 1 MG QOD 1.5 MG QOD   CHRONIC
  2. ASPIRIN [Concomitant]
  3. PREVACID [Concomitant]
  4. PAXIL [Concomitant]
  5. ENALAPRIL MALEATE [Concomitant]
  6. ZOCOR [Concomitant]
  7. GABAPENTIN [Concomitant]
  8. SEREVENT [Concomitant]
  9. LASIX [Concomitant]
  10. VICODIN [Concomitant]

REACTIONS (16)
  - ABDOMINAL PAIN [None]
  - ASTHENIA [None]
  - BLOOD PRESSURE DECREASED [None]
  - BUNDLE BRANCH BLOCK LEFT [None]
  - DIARRHOEA [None]
  - DIZZINESS [None]
  - DYSPNOEA [None]
  - ELECTROCARDIOGRAM QRS COMPLEX PROLONGED [None]
  - EPISTAXIS [None]
  - GASTROINTESTINAL HAEMORRHAGE [None]
  - HYPERHIDROSIS [None]
  - PAIN IN EXTREMITY [None]
  - RECTAL HAEMORRHAGE [None]
  - SKIN DISCOLOURATION [None]
  - TACHYCARDIA [None]
  - TROPONIN INCREASED [None]
